FAERS Safety Report 25063899 (Version 1)
Quarter: 2025Q1

REPORT INFORMATION
  Report Type: Other
  Country: JP (occurrence: JP)
  Receive Date: 20250311
  Receipt Date: 20250311
  Transmission Date: 20250409
  Serious: Yes (Other)
  Sender: COREPHARMA LLC
  Company Number: JP-CorePharma LLC-2172678

PATIENT
  Age: 97 Year
  Sex: Female

DRUGS (1)
  1. AMLODIPINE BESYLATE [Suspect]
     Active Substance: AMLODIPINE BESYLATE
     Indication: Hypertension

REACTIONS (2)
  - BRASH syndrome [Recovered/Resolved]
  - Hypermagnesaemia [Recovered/Resolved]
